FAERS Safety Report 24311017 (Version 2)
Quarter: 2024Q3

REPORT INFORMATION
  Report Type: Spontaneous
  Country: US (occurrence: US)
  Receive Date: 20240912
  Receipt Date: 20240919
  Transmission Date: 20241017
  Serious: No
  Sender: ABBVIE
  Company Number: US-ABBVIE-5910667

PATIENT
  Age: 34 Year
  Sex: Female
  Weight: 140 kg

DRUGS (2)
  1. QULIPTA [Suspect]
     Active Substance: ATOGEPANT
     Indication: Headache
     Dosage: FORM STRENGTH: 60 MG
     Route: 048
     Dates: start: 202305
  2. QULIPTA [Suspect]
     Active Substance: ATOGEPANT
     Indication: Headache
     Route: 048
     Dates: start: 202309

REACTIONS (1)
  - Migraine [Recovered/Resolved]

NARRATIVE: CASE EVENT DATE: 20240901
